FAERS Safety Report 4489949-1 (Version None)
Quarter: 2004Q4

REPORT INFORMATION
  Report Type: 
  Country: None (occurrence: None)
  Receive Date: 20041101
  Receipt Date: 20030225
  Transmission Date: 20050328
  Serious: Yes (Other)
  Sender: FDA-Public Use
  Company Number: IT-GLAXOSMITHKLINE-B0293557A

PATIENT
  Age: 65 Year
  Sex: Female

DRUGS (4)
  1. PAROXETINE HYDROCHLORIDE [Suspect]
     Indication: MAJOR DEPRESSION
     Route: 048
     Dates: start: 19960901, end: 20011001
  2. ALPRAZOLAM [Concomitant]
     Indication: MAJOR DEPRESSION
     Dates: start: 19980101
  3. ANTIDEPRESSANT (UNSPECIFIED) [Concomitant]
     Indication: MAJOR DEPRESSION
     Dates: start: 19960101
  4. MIRTAZAPINE [Concomitant]
     Indication: MAJOR DEPRESSION
     Route: 048
     Dates: start: 19980101

REACTIONS (14)
  - ABDOMINAL PAIN [None]
  - ABNORMAL BEHAVIOUR [None]
  - ANXIETY [None]
  - APATHY [None]
  - CONFUSIONAL STATE [None]
  - DIARRHOEA [None]
  - DRUG DEPENDENCE [None]
  - DRUG WITHDRAWAL SYNDROME [None]
  - HAEMORRHOIDAL HAEMORRHAGE [None]
  - HEADACHE [None]
  - INSOMNIA [None]
  - SENSORY DISTURBANCE [None]
  - TREMOR [None]
  - VISUAL DISTURBANCE [None]
